FAERS Safety Report 9155265 (Version 6)
Quarter: 2013Q4

REPORT INFORMATION
  Report Type: Spontaneous
  Country: US (occurrence: US)
  Receive Date: 20130311
  Receipt Date: 20131231
  Transmission Date: 20140711
  Serious: Yes (Hospitalization, Other)
  Sender: FDA-Public Use
  Company Number: US-009507513-1303USA003900

PATIENT
  Sex: Female
  Weight: 59.41 kg

DRUGS (6)
  1. FOSAMAX [Suspect]
     Dosage: 70 MG, QW
     Route: 048
     Dates: start: 20050310, end: 201001
  2. FOSAMAX [Suspect]
     Dosage: 10 MG, QD
     Route: 048
     Dates: start: 19970610
  3. FOSAMAX [Suspect]
     Dosage: UNK
     Route: 048
     Dates: start: 20080426, end: 200901
  4. CALCIUM (UNSPECIFIED) [Concomitant]
     Dosage: 500-1200 MG
     Dates: start: 1996
  5. VITAMINS (UNSPECIFIED) [Concomitant]
     Dosage: 4-1200 IU
     Dates: start: 2004
  6. ALLEGRA [Concomitant]
     Indication: SEASONAL ALLERGY
     Dosage: 80-180 MG, QD
     Route: 048
     Dates: start: 2005

REACTIONS (26)
  - Femur fracture [Recovered/Resolved]
  - Intramedullary rod insertion [Unknown]
  - Femur fracture [Unknown]
  - Fall [Unknown]
  - Open reduction of fracture [Unknown]
  - Internal fixation of fracture [Unknown]
  - Surgery [Unknown]
  - Open reduction of fracture [Unknown]
  - Foot fracture [Unknown]
  - Basal cell carcinoma [Unknown]
  - Foot fracture [Unknown]
  - Hypertension [Unknown]
  - Endodontic procedure [Unknown]
  - Cardiomegaly [Unknown]
  - Rectocele [Unknown]
  - Osteoarthritis [Unknown]
  - Spinal osteoarthritis [Unknown]
  - Somnolence [Unknown]
  - Joint surgery [Unknown]
  - Medical device removal [Unknown]
  - Fracture nonunion [Recovered/Resolved]
  - Vulvitis [Unknown]
  - Radiotherapy [Unknown]
  - Gingival operation [Unknown]
  - Hypothyroidism [Unknown]
  - Medical device removal [Unknown]
